FAERS Safety Report 18540735 (Version 6)
Quarter: 2021Q2

REPORT INFORMATION
  Report Type: Report from Study
  Country: US (occurrence: US)
  Receive Date: 20201124
  Receipt Date: 20210526
  Transmission Date: 20210717
  Serious: Yes (Hospitalization)
  Sender: FDA-Public Use
  Company Number: NVSC2020US308029

PATIENT
  Sex: Male

DRUGS (1)
  1. BEOVU [Suspect]
     Active Substance: BROLUCIZUMAB-DBLL
     Indication: NEOVASCULAR AGE-RELATED MACULAR DEGENERATION
     Dosage: UNK (BOTH EYES)
     Route: 047
     Dates: start: 20201005

REACTIONS (4)
  - Coronavirus test positive [Unknown]
  - Cardiac disorder [Unknown]
  - Pneumonia [Recovering/Resolving]
  - Lacrimation increased [Not Recovered/Not Resolved]
